FAERS Safety Report 9492619 (Version 1)
Quarter: 2013Q3

REPORT INFORMATION
  Report Type: Spontaneous
  Country: US (occurrence: US)
  Receive Date: 20130830
  Receipt Date: 20130830
  Transmission Date: 20140515
  Serious: No
  Sender: FDA-Public Use
  Company Number: US-009507513-1308USA012238

PATIENT
  Sex: Male

DRUGS (8)
  1. VICTRELIS [Suspect]
     Indication: HEPATITIS C
     Dosage: 800 MG/3 TIMES DAY
     Route: 048
     Dates: start: 20130415
  2. REBETOL [Suspect]
  3. PEGASYS [Suspect]
  4. LASIX (FUROSEMIDE) [Concomitant]
  5. NADOLOL [Concomitant]
  6. SPIRONOLACTONE [Concomitant]
  7. CLARITIN [Concomitant]
  8. DOCUSATE SODIUM\SENNOSIDES [Concomitant]

REACTIONS (1)
  - Adverse event [Unknown]
